FAERS Safety Report 5006858-X (Version None)
Quarter: 2006Q2

REPORT INFORMATION
  Report Type: 
  Country: None (occurrence: None)
  Receive Date: 20060516
  Receipt Date: 20060503
  Transmission Date: 20061013
  Serious: Yes (Other)
  Sender: FDA-Public Use
  Company Number: 153-20785-06050273

PATIENT
  Age: 66 Year
  Sex: Male

DRUGS (2)
  1. THALIDOMIDE (THALIDOMIDE) (CAPSULES) [Suspect]
     Indication: HEPATIC NEOPLASM MALIGNANT
     Dosage: 200 MG, QD, ORAL
     Route: 048
  2. 3D-CRT [Suspect]
     Indication: HEPATIC NEOPLASM MALIGNANT
     Dosage: 60 GY,

REACTIONS (2)
  - BILIARY TRACT DISORDER [None]
  - HEPATIC FUNCTION ABNORMAL [None]
